FAERS Safety Report 17346606 (Version 1)
Quarter: 2020Q1

REPORT INFORMATION
  Report Type: Report from Study
  Country: US (occurrence: US)
  Receive Date: 20200129
  Receipt Date: 20200129
  Transmission Date: 20200409
  Serious: No
  Sender: FDA-Public Use
  Company Number: US-EXELIXIS-CABO-19023176

PATIENT
  Age: 71 Year
  Sex: Male

DRUGS (1)
  1. CABOMETYX [Suspect]
     Active Substance: CABOZANTINIB S-MALATE
     Indication: LUNG CARCINOMA CELL TYPE UNSPECIFIED STAGE IV
     Dosage: 60 MG, QD (9:30 PM ON AN EMPTY STOMACH)
     Dates: start: 20190726

REACTIONS (14)
  - Skin exfoliation [Recovering/Resolving]
  - Hepatic enzyme increased [Recovered/Resolved]
  - Hypertension [Recovering/Resolving]
  - Off label use [Unknown]
  - Diarrhoea [Unknown]
  - Fatigue [Not Recovered/Not Resolved]
  - Photosensitivity reaction [Not Recovered/Not Resolved]
  - Hair colour changes [Unknown]
  - Nausea [Not Recovered/Not Resolved]
  - Dry skin [Recovering/Resolving]
  - Palmar-plantar erythrodysaesthesia syndrome [Recovering/Resolving]
  - Dyspnoea exertional [Not Recovered/Not Resolved]
  - Taste disorder [Not Recovered/Not Resolved]
  - Dysphonia [Recovering/Resolving]

NARRATIVE: CASE EVENT DATE: 201907
